FAERS Safety Report 9725925 (Version 1)
Quarter: 2013Q4

REPORT INFORMATION
  Report Type: Spontaneous
  Country: US (occurrence: None)
  Receive Date: 20131202
  Receipt Date: 20131202
  Transmission Date: 20140711
  Serious: Yes (Hospitalization)
  Sender: FDA-Public Use
  Company Number: None

PATIENT
  Age: 69 Year
  Sex: Male
  Weight: 83.2 kg

DRUGS (1)
  1. OXYCARBAZEPINE [Suspect]
     Indication: BIPOLAR DISORDER
     Route: 048
     Dates: start: 20130618, end: 20130817

REACTIONS (2)
  - Anaemia [None]
  - Hyponatraemia [None]
